FAERS Safety Report 10576275 (Version 7)
Quarter: 2016Q2

REPORT INFORMATION
  Report Type: Report from Study
  Country: US (occurrence: US)
  Receive Date: 20141111
  Receipt Date: 20160531
  Transmission Date: 20160815
  Serious: Yes (Other)
  Sender: FDA-Public Use
  Company Number: US-SA-2014SA105702

PATIENT
  Age: 56 Year
  Sex: Female

DRUGS (4)
  1. VITAMIN D [Concomitant]
     Active Substance: CHOLECALCIFEROL
  2. FISH OIL [Concomitant]
     Active Substance: FISH OIL
  3. AUBAGIO [Suspect]
     Active Substance: TERIFLUNOMIDE
     Indication: MULTIPLE SCLEROSIS
     Route: 048
     Dates: start: 20140722
  4. AUBAGIO [Suspect]
     Active Substance: TERIFLUNOMIDE
     Indication: MULTIPLE SCLEROSIS
     Route: 048
     Dates: start: 20140802

REACTIONS (35)
  - Bladder disorder [Not Recovered/Not Resolved]
  - Pain in extremity [Not Recovered/Not Resolved]
  - Aggression [Unknown]
  - Paraesthesia [Not Recovered/Not Resolved]
  - Multiple sclerosis relapse [Recovered/Resolved]
  - Hordeolum [Unknown]
  - Retinal disorder [Not Recovered/Not Resolved]
  - Emotional distress [Unknown]
  - Speech disorder [Unknown]
  - Peroneal nerve palsy [Not Recovered/Not Resolved]
  - Oropharyngeal pain [Recovered/Resolved]
  - Diarrhoea [Not Recovered/Not Resolved]
  - Carpal tunnel syndrome [Unknown]
  - Urinary incontinence [Not Recovered/Not Resolved]
  - Activities of daily living impaired [Unknown]
  - Memory impairment [Unknown]
  - Gastric disorder [Not Recovered/Not Resolved]
  - Muscle spasms [Not Recovered/Not Resolved]
  - Muscle disorder [Unknown]
  - Vertigo [Recovered/Resolved]
  - Nerve injury [Not Recovered/Not Resolved]
  - Frustration tolerance decreased [Not Recovered/Not Resolved]
  - Aphasia [Unknown]
  - Nausea [Recovering/Resolving]
  - Headache [Recovering/Resolving]
  - Abdominal pain upper [Unknown]
  - Drug dose omission [Unknown]
  - Arthralgia [Not Recovered/Not Resolved]
  - Fatigue [Unknown]
  - Yawning [Unknown]
  - Depressed mood [Unknown]
  - Alopecia [Recovering/Resolving]
  - Arthritis [Not Recovered/Not Resolved]
  - Cartilage injury [Not Recovered/Not Resolved]
  - Anxiety [Unknown]

NARRATIVE: CASE EVENT DATE: 201408
